FAERS Safety Report 8789805 (Version 3)
Quarter: 2012Q4

REPORT INFORMATION
  Report Type: 
  Country: US (occurrence: US)
  Receive Date: 20120917
  Receipt Date: 20121226
  Transmission Date: 20130627
  Serious: Yes (Other)
  Sender: FDA-Public Use
  Company Number: US-ACTELION-A-US2012-65460

PATIENT
  Age: 70 Year
  Sex: Female

DRUGS (4)
  1. TRACLEER [Suspect]
     Indication: PULMONARY ARTERIAL HYPERTENSION
     Dosage: UNK
     Route: 048
  2. COUMADIN [Concomitant]
  3. ASPIRIN [Concomitant]
  4. LASIX [Concomitant]

REACTIONS (4)
  - Pulmonary oedema [Unknown]
  - Fluid retention [Unknown]
  - Dyspnoea [Unknown]
  - Oxygen consumption [Unknown]
